FAERS Safety Report 6176121-2 (Version None)
Quarter: 2009Q2

REPORT INFORMATION
  Report Type: 
  Country: None (occurrence: None)
  Receive Date: 20090501
  Receipt Date: 20090420
  Transmission Date: 20091009
  Serious: Yes (Other)
  Sender: FDA-Public Use
  Company Number: US-CELGENEUS-163-20785-09042080

PATIENT

DRUGS (16)
  1. THALOMID [Suspect]
     Indication: MULTIPLE MYELOMA
     Route: 048
  2. DEXAMETHASONE TAB [Suspect]
     Indication: MULTIPLE MYELOMA
     Route: 065
  3. BORTEZOMIB [Suspect]
     Indication: MULTIPLE MYELOMA
     Route: 065
  4. PREDNISONE [Suspect]
     Indication: MULTIPLE MYELOMA
     Route: 065
  5. CISPLATIN [Suspect]
     Indication: MULTIPLE MYELOMA
     Route: 065
  6. DOXORUBICIN HCL [Suspect]
     Indication: MULTIPLE MYELOMA
     Route: 065
  7. ETOPOSIDE [Suspect]
     Indication: MULTIPLE MYELOMA
     Route: 065
  8. DOXIL [Suspect]
     Indication: MULTIPLE MYELOMA
     Route: 065
  9. MELPHALAN [Suspect]
     Indication: MULTIPLE MYELOMA
     Route: 065
  10. ASPIRIN [Concomitant]
     Route: 065
  11. ASPIRIN [Concomitant]
     Route: 065
  12. PLAVIX [Concomitant]
     Route: 065
  13. COUMADIN [Concomitant]
     Route: 065
  14. COUMADIN [Concomitant]
     Route: 065
  15. LOVENOX [Concomitant]
     Route: 065
  16. LOVENOX [Concomitant]
     Route: 065

REACTIONS (4)
  - BLOOD HOMOCYSTEINE INCREASED [None]
  - EMBOLISM VENOUS [None]
  - NEPHROTIC SYNDROME [None]
  - RENAL FAILURE [None]
